FAERS Safety Report 5221775-8 (Version None)
Quarter: 2007Q1

REPORT INFORMATION
  Report Type: 
  Country: None (occurrence: None)
  Receive Date: 20070125
  Receipt Date: 20070125
  Transmission Date: 20070707
  Serious: Yes (Hospitalization)
  Sender: FDA-Public Use
  Company Number: None

PATIENT
  Age: 58 Year
  Sex: Male
  Weight: 117.8 kg

DRUGS (1)
  1. CEFEPIME [Suspect]
     Indication: INFECTION
     Dosage: 1 GM Q12H IV BOLUS
     Route: 040

REACTIONS (3)
  - NEPHRITIS INTERSTITIAL [None]
  - RENAL CYST [None]
  - RENAL FAILURE ACUTE [None]
